FAERS Safety Report 21554317 (Version 2)
Quarter: 2022Q4

REPORT INFORMATION
  Report Type: Spontaneous
  Country: JP (occurrence: JP)
  Receive Date: 20221104
  Receipt Date: 20221116
  Transmission Date: 20230113
  Serious: Yes (Death, Other)
  Sender: FDA-Public Use
  Company Number: JP-GILEAD-2022-0603078

PATIENT
  Age: 93 Year
  Sex: Male

DRUGS (3)
  1. VEKLURY [Suspect]
     Active Substance: REMDESIVIR
     Indication: COVID-19
     Dosage: 200 MG
     Route: 041
     Dates: start: 20221021, end: 20221021
  2. VEKLURY [Suspect]
     Active Substance: REMDESIVIR
     Dosage: 100 MG
     Route: 041
     Dates: start: 20221031, end: 20221103
  3. SOTROVIMAB [Concomitant]
     Active Substance: SOTROVIMAB
     Dosage: UNK
     Dates: start: 20221021

REACTIONS (2)
  - Pneumonia aspiration [Fatal]
  - COVID-19 [Recovered/Resolved]
